FAERS Safety Report 21119099 (Version 1)
Quarter: 2022Q3

REPORT INFORMATION
  Report Type: Other
  Country: FR (occurrence: FR)
  Receive Date: 20220722
  Receipt Date: 20220722
  Transmission Date: 20221027
  Serious: Yes (Other)
  Sender: FDA-Public Use
  Company Number: FR-ROCHE-3112017

PATIENT
  Age: 64 Year
  Sex: Female
  Weight: 62 kg

DRUGS (9)
  1. CAPECITABINE [Suspect]
     Active Substance: CAPECITABINE
     Indication: Hypoglycaemia
     Dosage: 6 CYCLES
     Route: 065
     Dates: start: 202006, end: 20201213
  2. CAPECITABINE [Suspect]
     Active Substance: CAPECITABINE
     Indication: Insulinoma
  3. TEMOZOLOMIDE [Suspect]
     Active Substance: TEMOZOLOMIDE
     Indication: Hypoglycaemia
     Dosage: 6 CYCLES
     Route: 065
     Dates: start: 202006, end: 20201213
  4. TEMOZOLOMIDE [Suspect]
     Active Substance: TEMOZOLOMIDE
     Indication: Insulinoma
  5. PASIREOTIDE [Concomitant]
     Active Substance: PASIREOTIDE
     Dosage: SHORT ACTING
     Route: 058
     Dates: start: 201912, end: 202012
  6. PASIREOTIDE [Concomitant]
     Active Substance: PASIREOTIDE
     Dosage: LONG ACTING
     Route: 058
     Dates: start: 202012
  7. PASIREOTIDE [Concomitant]
     Active Substance: PASIREOTIDE
     Dosage: LONG ACTING
     Route: 058
     Dates: start: 202202
  8. SUNITINIB [Concomitant]
     Active Substance: SUNITINIB
     Dates: start: 201912, end: 202006
  9. OCTREOTIDE [Concomitant]
     Active Substance: OCTREOTIDE
     Dates: start: 201602, end: 201602

REACTIONS (2)
  - Thrombocytopenia [Recovering/Resolving]
  - Off label use [Unknown]
